FAERS Safety Report 8030210-6 (Version None)
Quarter: 2012Q1

REPORT INFORMATION
  Report Type: 
  Country: None (occurrence: None)
  Receive Date: 20120109
  Receipt Date: 20111230
  Transmission Date: 20120608
  Serious: Yes (Hospitalization)
  Sender: FDA-Public Use
  Company Number: DE-SANOFI-AVENTIS-2011SA044875

PATIENT
  Sex: Male
  Weight: 90 kg

DRUGS (8)
  1. CAPECITABINE [Suspect]
     Indication: RECTAL CANCER
     Dosage: ACTUAL DOSE: 3500 MG
     Route: 048
     Dates: start: 20110620, end: 20110703
  2. THERAPEUTIC RADIOPHARMACEUTICALS [Suspect]
     Indication: RECTAL CANCER
     Dosage: 13 FRACTIONS OF 1.8 GY, TOTAL 23.4 GY
     Route: 065
     Dates: start: 20110620, end: 20110709
  3. METOPROLOL SUCCINATE [Concomitant]
     Indication: HYPERTENSION
     Route: 048
  4. LOPERAMIDE [Concomitant]
     Route: 048
     Dates: start: 20110624
  5. ASPIRIN [Concomitant]
     Indication: HAEMODILUTION
     Route: 048
  6. CAPECITABINE [Suspect]
     Route: 048
     Dates: start: 20110709, end: 20110709
  7. OXALIPLATIN [Suspect]
     Indication: RECTAL CANCER
     Dosage: ACTUAL DOSE: 105 MG, ON DAY 1, 8, 15, 22 AND 29
     Route: 042
     Dates: start: 20110629, end: 20110705
  8. ATORVASTATIN [Concomitant]
     Route: 048

REACTIONS (3)
  - DIARRHOEA [None]
  - PROCTALGIA [None]
  - URINARY RETENTION [None]
